FAERS Safety Report 6201254-1 (Version None)
Quarter: 2009Q2

REPORT INFORMATION
  Report Type: 
  Country: None (occurrence: None)
  Receive Date: 20090526
  Receipt Date: 20090514
  Transmission Date: 20091009
  Serious: Yes (Hospitalization, Other)
  Sender: FDA-Public Use
  Company Number: JP-ASTRAZENECA-2009AP02767

PATIENT
  Age: 64 Year
  Sex: Female
  Weight: 51 kg

DRUGS (2)
  1. ANAPEINE [Suspect]
     Indication: NERVE BLOCK
     Route: 053
     Dates: start: 20080930, end: 20080930
  2. XYLOCAINE [Suspect]
     Indication: NERVE BLOCK
     Route: 053
     Dates: start: 20080930, end: 20080930

REACTIONS (1)
  - DRUG TOXICITY [None]
